FAERS Safety Report 16690937 (Version 3)
Quarter: 2019Q3

REPORT INFORMATION
  Report Type: Spontaneous
  Country: FR (occurrence: FR)
  Receive Date: 20190812
  Receipt Date: 20190919
  Transmission Date: 20191004
  Serious: Yes (Other)
  Sender: FDA-Public Use
  Company Number: FR-AUROBINDO-AUR-APL-2019-052505

PATIENT
  Age: 55 Year
  Sex: Male

DRUGS (3)
  1. RIFADINE [Suspect]
     Active Substance: RIFAMPIN
     Indication: STAPHYLOCOCCAL IMPETIGO
     Dosage: 1200 MILLIGRAM, DAILY
     Route: 048
     Dates: start: 20190513
  2. OFLOXACIN. [Suspect]
     Active Substance: OFLOXACIN
     Indication: STAPHYLOCOCCAL INFECTION
     Dosage: 600 MILLIGRAM, DAILY
     Route: 048
     Dates: start: 20190513, end: 20190722
  3. GABAPENTIN ARROW [Suspect]
     Active Substance: GABAPENTIN
     Indication: INTERVERTEBRAL DISC DISORDER
     Dosage: 1200 MILLIGRAM, DAILY
     Route: 048
     Dates: start: 2019, end: 20190630

REACTIONS (3)
  - Vertigo [Recovered/Resolved]
  - Tremor [Recovered/Resolved]
  - Visual acuity reduced [Not Recovered/Not Resolved]

NARRATIVE: CASE EVENT DATE: 201906
